FAERS Safety Report 22131417 (Version 1)
Quarter: 2023Q1

REPORT INFORMATION
  Report Type: Spontaneous
  Country: US (occurrence: None)
  Receive Date: 20230322
  Receipt Date: 20230322
  Transmission Date: 20230417
  Serious: No
  Sender: FDA-Public Use
  Company Number: None

PATIENT
  Age: 82 Year
  Sex: Female
  Weight: 61.69 kg

DRUGS (10)
  1. CAPECITABINE [Suspect]
     Active Substance: CAPECITABINE
     Indication: Breast cancer female
     Dosage: FREQUENCY : TWICE A DAY;?
     Route: 048
     Dates: start: 202111
  2. XGEVA [Suspect]
     Active Substance: DENOSUMAB
     Indication: Breast cancer female
     Dosage: OTHER FREQUENCY : DAY 1;?
     Route: 058
     Dates: start: 201910
  3. ASPIRIN [Concomitant]
     Active Substance: ASPIRIN
  4. ATORVASTATIN [Concomitant]
     Active Substance: ATORVASTATIN
  5. FULVESTRANT [Concomitant]
     Active Substance: FULVESTRANT
  6. FUROSEMIDE [Concomitant]
     Active Substance: FUROSEMIDE
  7. IBRANCE [Concomitant]
     Active Substance: PALBOCICLIB
  8. LISINOPRIL [Concomitant]
     Active Substance: LISINOPRIL
  9. LOVENOX [Concomitant]
     Active Substance: ENOXAPARIN SODIUM
  10. ZOLEDRONIC ACID [Concomitant]
     Active Substance: ZOLEDRONIC ACID

REACTIONS (2)
  - Breast cancer female [None]
  - Disease progression [None]
